FAERS Safety Report 10154675 (Version 2)
Quarter: 2014Q2

REPORT INFORMATION
  Report Type: Report from Study
  Country: FR (occurrence: FR)
  Receive Date: 20140506
  Receipt Date: 20140506
  Transmission Date: 20141212
  Serious: Yes (Death, Hospitalization)
  Sender: FDA-Public Use
  Company Number: FR-SA-CLOF-1002201

PATIENT
  Age: 17 Year
  Sex: Male
  Weight: 62.2 kg

DRUGS (5)
  1. EVOLTRA [Suspect]
     Indication: PRODUCT USED FOR UNKNOWN INDICATION
     Dosage: UNK
     Route: 042
     Dates: start: 20111117, end: 20111121
  2. INSULIN [Concomitant]
     Indication: DIABETES MELLITUS
     Dosage: 28 IU, UNK
     Dates: start: 20120327
  3. NOVORAPID [Concomitant]
     Indication: DIABETES MELLITUS
     Dosage: UNK
     Dates: start: 20120327
  4. TRAMADOL [Concomitant]
     Indication: PAIN PROPHYLAXIS
     Dosage: UNK
     Dates: start: 20120412
  5. BACTRIN [Concomitant]
     Indication: INFECTION PROPHYLAXIS
     Dosage: UNK

REACTIONS (1)
  - Lung disorder [Fatal]
